FAERS Safety Report 14192168 (Version 4)
Quarter: 2018Q1

REPORT INFORMATION
  Report Type: Spontaneous
  Country: DE (occurrence: DE)
  Receive Date: 20171115
  Receipt Date: 20180326
  Transmission Date: 20180508
  Serious: Yes (Other)
  Sender: FDA-Public Use
  Company Number: DE-PFIZER INC-2017422803

PATIENT
  Age: 65 Year
  Sex: Female

DRUGS (1)
  1. LANTAREL [Suspect]
     Active Substance: METHOTREXATE SODIUM
     Dosage: 15 MG, WEEKLY
     Dates: start: 2012

REACTIONS (9)
  - Drug ineffective [Unknown]
  - Cough [Not Recovered/Not Resolved]
  - Alopecia [Unknown]
  - Lung disorder [Unknown]
  - Rhinorrhoea [Not Recovered/Not Resolved]
  - Epistaxis [Not Recovered/Not Resolved]
  - Nasal congestion [Not Recovered/Not Resolved]
  - Rheumatoid nodule [Recovered/Resolved]
  - Pigmentation disorder [Unknown]
